FAERS Safety Report 9899023 (Version 3)
Quarter: 2014Q3

REPORT INFORMATION
  Report Type: Report from Study
  Country: US (occurrence: US)
  Receive Date: 20140214
  Receipt Date: 20140723
  Transmission Date: 20150326
  Serious: Yes (Hospitalization, Other)
  Sender: FDA-Public Use
  Company Number: US-BAYER-2014-018862

PATIENT
  Age: 54 Year
  Sex: Male

DRUGS (2)
  1. STIVARGA [Suspect]
     Active Substance: REGORAFENIB
     Indication: LUNG NEOPLASM MALIGNANT
     Dosage: 160 MG, QD, 40 MG, 4 DAILY
     Route: 048
     Dates: start: 20140125, end: 20140204
  2. STIVARGA [Suspect]
     Active Substance: REGORAFENIB
     Indication: BRONCHIAL CARCINOMA
     Dosage: 80 MG, QD
     Route: 048
     Dates: start: 20140224, end: 20140310

REACTIONS (12)
  - Tumour associated fever [Recovered/Resolved]
  - Headache [None]
  - Dehydration [Recovered/Resolved]
  - Oropharyngeal pain [None]
  - Haemorrhage [None]
  - Pain in extremity [None]
  - Off label use [None]
  - Pain [Recovered/Resolved]
  - Peripheral swelling [None]
  - Chills [None]
  - Faeces discoloured [None]
  - Diarrhoea [None]

NARRATIVE: CASE EVENT DATE: 20140310
